FAERS Safety Report 13446240 (Version 6)
Quarter: 2019Q3

REPORT INFORMATION
  Report Type: Report from Study
  Country: SI (occurrence: SI)
  Receive Date: 20170417
  Receipt Date: 20190716
  Transmission Date: 20191004
  Serious: Yes (Hospitalization)
  Sender: FDA-Public Use
  Company Number: SI-ROCHE-1905656

PATIENT
  Age: 72 Year
  Sex: Female
  Weight: 57 kg

DRUGS (31)
  1. FRAGMIN [Concomitant]
     Active Substance: DALTEPARIN SODIUM
     Indication: DEEP VEIN THROMBOSIS
     Route: 058
     Dates: start: 20170223, end: 20170426
  2. ACTRAPID [Concomitant]
     Active Substance: INSULIN HUMAN
     Indication: DIABETES MELLITUS
     Route: 042
     Dates: start: 20170309, end: 20170316
  3. POTASSIUM CHLORIDE. [Concomitant]
     Active Substance: POTASSIUM CHLORIDE
     Indication: HYPOCALCAEMIA
     Route: 042
     Dates: start: 20170317, end: 20170321
  4. CALCIUM CARBONATE. [Concomitant]
     Active Substance: CALCIUM CARBONATE
     Route: 048
     Dates: start: 20170326
  5. DIFLUCAN [Concomitant]
     Active Substance: FLUCONAZOLE
     Route: 042
     Dates: start: 20170328, end: 20170329
  6. SEVREDOL [Concomitant]
     Active Substance: MORPHINE
     Indication: ARTHRALGIA
     Route: 048
     Dates: start: 20170314
  7. REGLAN [Concomitant]
     Active Substance: METOCLOPRAMIDE HYDROCHLORIDE
     Indication: NAUSEA
     Dosage: 1 AMPULE
     Route: 042
     Dates: start: 20170310, end: 20170330
  8. REGLAN [Concomitant]
     Active Substance: METOCLOPRAMIDE HYDROCHLORIDE
     Dosage: PRN (AS NEEDED)
     Route: 048
     Dates: start: 20170330, end: 20170504
  9. BLOOD [Concomitant]
     Active Substance: WHOLE BLOOD
     Indication: ANAEMIA
     Dosage: 1 UNIT
     Route: 042
     Dates: start: 20170317, end: 20170318
  10. DIFLUCAN [Concomitant]
     Active Substance: FLUCONAZOLE
     Route: 042
     Dates: start: 20170330, end: 20170403
  11. MAGNESIUM SULPHATE [MAGNESIUM SULFATE] [Concomitant]
     Active Substance: MAGNESIUM SULFATE
     Indication: HYPOMAGNESAEMIA
     Route: 048
     Dates: start: 20170406, end: 20170406
  12. ANALGINE [Concomitant]
     Indication: PYREXIA
     Route: 042
     Dates: start: 20170308, end: 20170308
  13. ATEZOLIZUMAB. [Suspect]
     Active Substance: ATEZOLIZUMAB
     Indication: TRANSITIONAL CELL CARCINOMA
     Dosage: LAST DOSE PRIOR TO SAE: 08/MAR/2017?LAST DOSE PRIOR TO SAE: 05/APR/2017?LAST DOSE PRIOR TO SAE: 26/A
     Route: 042
     Dates: start: 20170308
  14. CARBOPLATIN. [Suspect]
     Active Substance: CARBOPLATIN
     Indication: TRANSITIONAL CELL CARCINOMA
     Dosage: LAST DOSE PRIOR TO SAE: 08/MAR/2017 OF 221.0MG?DOSE: AREA UNDER THE CONCENTRATION-TIME CURVE (AUC) O
     Route: 042
     Dates: start: 20170308
  15. NEUPOGEN [Concomitant]
     Active Substance: FILGRASTIM
     Indication: NEUTROPENIA
     Route: 058
     Dates: start: 20170314, end: 20170318
  16. KALINORM [Concomitant]
     Route: 048
     Dates: start: 20170330, end: 20170330
  17. FENTANYL. [Concomitant]
     Active Substance: FENTANYL
     Indication: ARTHRALGIA
     Route: 062
  18. PORTALAC [Concomitant]
     Active Substance: LACTULOSE
     Indication: CONSTIPATION
     Dosage: 2 TBSP
     Route: 048
     Dates: end: 20170315
  19. KABIVEN [Concomitant]
     Active Substance: AMINO ACIDS\ANHYDROUS DEXTROSE\CALCIUM CHLORIDE\MAGNESIUM SULFATE HEPTAHYDRATE\POTASSIUM CHLORIDE\SODIUM ACETATE\SODIUM GLYCEROPHOSPHATE ANHYDROUS\SOYBEAN OIL
     Indication: DECREASED APPETITE
     Route: 042
     Dates: start: 20170308, end: 20170316
  20. HELEX [Concomitant]
     Active Substance: ALPRAZOLAM
     Indication: ANXIETY
     Route: 048
     Dates: start: 20170311
  21. KALINORM [Concomitant]
     Indication: HYPOCALCAEMIA
     Route: 048
     Dates: start: 20170320, end: 20170320
  22. CALCIUM CARBONATE. [Concomitant]
     Active Substance: CALCIUM CARBONATE
     Indication: HYPOCALCAEMIA
     Dosage: 2 AMPULE
     Route: 042
     Dates: start: 20170326, end: 20170327
  23. CALCIUM CARBONATE. [Concomitant]
     Active Substance: CALCIUM CARBONATE
     Dosage: 2 AMPULE
     Route: 042
     Dates: start: 20170406, end: 20170406
  24. DAKTARIN [MICONAZOLE] [Concomitant]
     Indication: OROPHARYNGEAL PAIN
     Dosage: 1 TBSP
     Route: 048
     Dates: start: 20170313
  25. CIPROBAY [CIPROFLOXACIN] [Concomitant]
     Indication: CELLULITIS
     Route: 048
     Dates: start: 20170405, end: 20170413
  26. GEMCITABINE. [Suspect]
     Active Substance: GEMCITABINE
     Indication: TRANSITIONAL CELL CARCINOMA
     Dosage: LAST DOSE PRIOR TO SAE: 08/MAR/2017 OF 1590 MG/M2?FREQUENCY: ON DAY 1 AND DAY 8 OF EACH 21-DAY CYCLE
     Route: 042
     Dates: start: 20170308
  27. LACIPIL [Concomitant]
     Active Substance: LACIDIPINE
     Indication: HYPERTENSION
     Route: 048
     Dates: end: 20170425
  28. EDEMID [Concomitant]
     Active Substance: FUROSEMIDE
     Indication: CHRONIC KIDNEY DISEASE
     Route: 042
     Dates: start: 20170313, end: 20170327
  29. MORPHINE [Concomitant]
     Active Substance: MORPHINE
     Indication: PAIN
     Route: 048
     Dates: start: 20170314, end: 20170318
  30. BLOOD [Concomitant]
     Active Substance: WHOLE BLOOD
     Dosage: 2 UNIT
     Route: 042
     Dates: start: 20170330, end: 20170330
  31. ABSTRAL [Concomitant]
     Active Substance: FENTANYL CITRATE
     Indication: PAIN
     Dosage: PRN (AS NEEDED)
     Route: 060
     Dates: start: 20170414, end: 20170630

REACTIONS (4)
  - Pyrexia [Recovered/Resolved]
  - Thrombocytopenia [Not Recovered/Not Resolved]
  - Diabetes mellitus [Recovered/Resolved]
  - Urinary tract infection [Recovered/Resolved]

NARRATIVE: CASE EVENT DATE: 20170308
